FAERS Safety Report 19080540 (Version 4)
Quarter: 2021Q2

REPORT INFORMATION
  Report Type: Report from Study
  Country: CO (occurrence: CO)
  Receive Date: 20210331
  Receipt Date: 20210602
  Transmission Date: 20210717
  Serious: Yes (Other)
  Sender: FDA-Public Use
  Company Number: CO-TAKEDA-CO202014000

PATIENT
  Age: 51 Year
  Sex: Male
  Weight: 83 kg

DRUGS (5)
  1. ICATIBANT [Suspect]
     Active Substance: ICATIBANT ACETATE
     Indication: HEREDITARY ANGIOEDEMA
     Dosage: 30 MILLIGRAM (30 MG/3ML), EVERY 6 HOURS
     Route: 058
     Dates: start: 20190913
  2. ICATIBANT [Suspect]
     Active Substance: ICATIBANT ACETATE
     Dosage: 30 MILLIGRAM (30MG/3ML), EVERY 6 HOURS, MAX 3 SYRINGES WITHIN 24 HOURS
     Route: 058
     Dates: start: 20190913
  3. ICATIBANT [Suspect]
     Active Substance: ICATIBANT ACETATE
     Indication: HEREDITARY ANGIOEDEMA
     Dosage: 30 MILLIGRAM (30 MG/3ML), EVERY 6 HOURS
     Route: 058
     Dates: start: 20190913
  4. ICATIBANT [Suspect]
     Active Substance: ICATIBANT ACETATE
     Dosage: 30 MILLIGRAM (30MG/3ML), EVERY 6 HOURS, MAX 3 SYRINGES WITHIN 24 HOURS
     Route: 058
     Dates: start: 20190913
  5. AMLODIPINE [Concomitant]
     Active Substance: AMLODIPINE BESYLATE
     Route: 065

REACTIONS (7)
  - Blood glucose increased [Unknown]
  - Weight decreased [Unknown]
  - Syncope [Unknown]
  - Dizziness [Not Recovered/Not Resolved]
  - Headache [Not Recovered/Not Resolved]
  - Vertigo [Unknown]
  - Illness [Unknown]

NARRATIVE: CASE EVENT DATE: 20200506
